FAERS Safety Report 4905488-5 (Version None)
Quarter: 2006Q1

REPORT INFORMATION
  Report Type: 
  Country: None (occurrence: None)
  Receive Date: 20060208
  Receipt Date: 20060202
  Transmission Date: 20060701
  Serious: Yes (Death, Hospitalization)
  Sender: FDA-Public Use
  Company Number: 2006PK00275

PATIENT
  Age: 56 Year
  Sex: Female

DRUGS (14)
  1. NEXIUM [Suspect]
     Indication: GASTRITIS
     Route: 048
  2. GLUCOPHAGE [Suspect]
     Indication: DIABETES MELLITUS NON-INSULIN-DEPENDENT
     Route: 048
  3. SELIPRAN [Suspect]
     Indication: HYPERLIPIDAEMIA
     Route: 048
  4. TOREM [Suspect]
     Route: 048
  5. SALAZOPYRIN [Suspect]
     Indication: CROHN'S DISEASE
  6. PURI-NETHOL [Suspect]
     Indication: AUTOIMMUNE THYROIDITIS
     Route: 048
  7. VITARUBIN [Concomitant]
     Indication: ANAEMIA VITAMIN B12 DEFICIENCY
     Route: 058
  8. BENERVA [Concomitant]
     Indication: MALABSORPTION
     Route: 048
  9. KONAKION [Concomitant]
     Indication: MALABSORPTION
  10. NOROXIN [Concomitant]
     Indication: CYSTITIS
     Route: 048
     Dates: start: 20051021, end: 20051023
  11. BACTRIM [Concomitant]
     Indication: BRONCHIECTASIS
     Dosage: 800/160 MG
     Route: 048
  12. BELOC [Concomitant]
     Indication: HYPERTENSION
     Route: 048
  13. ZYRTEC [Concomitant]
     Route: 048
  14. SPIRIVA [Concomitant]
     Indication: CHRONIC OBSTRUCTIVE PULMONARY DISEASE
     Route: 055

REACTIONS (12)
  - ANAEMIA MACROCYTIC [None]
  - DEATH [None]
  - HAEMODYNAMIC INSTABILITY [None]
  - HEPATITIS [None]
  - HEPATOCELLULAR DAMAGE [None]
  - LACTIC ACIDOSIS [None]
  - PANCREATITIS [None]
  - PANCREATITIS ACUTE [None]
  - RENAL FAILURE [None]
  - RESPIRATORY FAILURE [None]
  - TACHYPNOEA [None]
  - VITAMIN B12 DEFICIENCY [None]
